FAERS Safety Report 9661205 (Version 2)
Quarter: 2013Q4

REPORT INFORMATION
  Report Type: Report from Study
  Country: CA (occurrence: CA)
  Receive Date: 20131031
  Receipt Date: 20131113
  Transmission Date: 20140711
  Serious: Yes (Hospitalization)
  Sender: FDA-Public Use
  Company Number: CA-ABBVIE-13P-028-1161828-00

PATIENT
  Sex: Male
  Weight: 93.98 kg

DRUGS (2)
  1. HUMIRA [Suspect]
     Indication: CROHN^S DISEASE
     Route: 058
     Dates: start: 20130830, end: 20131104
  2. HUMIRA [Suspect]
     Route: 058
     Dates: start: 201311

REACTIONS (3)
  - Intestinal obstruction [Recovered/Resolved]
  - Inflammation [Not Recovered/Not Resolved]
  - Adhesion [Not Recovered/Not Resolved]
